FAERS Safety Report 4882748-8 (Version None)
Quarter: 2006Q1

REPORT INFORMATION
  Report Type: 
  Country: None (occurrence: None)
  Receive Date: 20060117
  Receipt Date: 20050218
  Transmission Date: 20060701
  Serious: Yes (Hospitalization, Other)
  Sender: FDA-Public Use
  Company Number: US-MERCK-0502USA02760

PATIENT
  Age: 52 Year
  Sex: Female
  Weight: 91 kg

DRUGS (5)
  1. VIOXX [Suspect]
     Indication: BACK DISORDER
     Route: 048
     Dates: start: 19990101, end: 20010101
  2. VIOXX [Suspect]
     Route: 048
     Dates: start: 19990101, end: 20010101
  3. [THERAPY UNSPECIFIED] [Concomitant]
     Indication: BLOOD PRESSURE
     Route: 065
  4. INSULIN [Concomitant]
     Route: 065
  5. [THERAPY UNSPECIFIED] [Concomitant]
     Indication: FLUID OVERLOAD
     Route: 065

REACTIONS (6)
  - CARDIAC DISORDER [None]
  - CEREBROVASCULAR ACCIDENT [None]
  - INJURY [None]
  - MYOCARDIAL INFARCTION [None]
  - OVERDOSE [None]
  - SINUSITIS [None]
